FAERS Safety Report 7964566-7 (Version None)
Quarter: 2011Q4

REPORT INFORMATION
  Report Type: 
  Country: None (occurrence: None)
  Receive Date: 20111206
  Receipt Date: 20111124
  Transmission Date: 20120403
  Serious: Yes (Death)
  Sender: FDA-Public Use
  Company Number: DSJ-2011-25373

PATIENT
  Age: 7 Decade
  Sex: Male

DRUGS (1)
  1. BENICAR [Suspect]
     Indication: HYPERTENSION
     Dosage: 20/5MG (1 IN 1 D), PER ORAL
     Route: 048
     Dates: start: 20100101

REACTIONS (1)
  - DEATH [None]
